FAERS Safety Report 4682307-6 (Version None)
Quarter: 2005Q2

REPORT INFORMATION
  Report Type: 
  Country: None (occurrence: None)
  Receive Date: 20050606
  Receipt Date: 20050527
  Transmission Date: 20051028
  Serious: Yes (Other)
  Sender: FDA-Public Use
  Company Number: US-JNJFOC-20050507366

PATIENT
  Age: 54 Year
  Sex: Female
  Weight: 46.72 kg

DRUGS (8)
  1. DURAGESIC-100 [Suspect]
     Route: 062
     Dates: start: 20021101
  2. ACTIQ [Concomitant]
     Indication: PAIN
     Dates: start: 20030801
  3. METHADONE HCL [Concomitant]
     Route: 049
     Dates: start: 20050101
  4. ATIVAN [Concomitant]
     Indication: ANXIETY
     Route: 049
     Dates: start: 19990101
  5. PROVIGIL [Concomitant]
     Indication: SLEEP DISORDER
     Dosage: USUALLY TAKES TWO IN 1 DAY AS NECESSARY UP TO 3 IN 1 DAY
     Route: 049
     Dates: start: 19990101
  6. MYACALCIN [Concomitant]
     Dates: start: 20040101
  7. FOSAMAX [Concomitant]
     Route: 049
     Dates: start: 20040301
  8. DILANTIN KAPSEAL [Concomitant]
     Route: 049
     Dates: start: 20040101, end: 20040201

REACTIONS (1)
  - CONVULSION [None]
